FAERS Safety Report 17495730 (Version 1)
Quarter: 2020Q1

REPORT INFORMATION
  Report Type: Spontaneous
  Country: US (occurrence: US)
  Receive Date: 20200304
  Receipt Date: 20200304
  Transmission Date: 20200409
  Serious: No
  Sender: FDA-Public Use
  Company Number: US-PFIZER INC-2020095775

PATIENT
  Age: 35 Year

DRUGS (1)
  1. CHANTIX [Suspect]
     Active Substance: VARENICLINE TARTRATE
     Dosage: UNK

REACTIONS (4)
  - Pre-existing condition improved [Unknown]
  - Thinking abnormal [Unknown]
  - Therapeutic response unexpected [Unknown]
  - Feeling abnormal [Unknown]
